FAERS Safety Report 9268119 (Version 1)
Quarter: 2013Q2

REPORT INFORMATION
  Report Type: Spontaneous
  Country: US (occurrence: US)
  Receive Date: 20130502
  Receipt Date: 20130502
  Transmission Date: 20140414
  Serious: Yes (Hospitalization)
  Sender: FDA-Public Use
  Company Number: US-ALEXION-A201201492

PATIENT
  Age: 18 Year
  Sex: Female
  Weight: 88.4 kg

DRUGS (12)
  1. SOLIRIS 300MG [Suspect]
     Indication: PAROXYSMAL NOCTURNAL HAEMOGLOBINURIA
     Dosage: 900 MG, Q2W
     Route: 042
     Dates: start: 20120530
  2. SOLIRIS 300MG [Suspect]
     Dosage: 600 MG, QW
     Route: 042
     Dates: start: 20120501, end: 201205
  3. LOVENOX [Concomitant]
     Indication: PROPHYLAXIS
     Dosage: 0.4 ML, BID INJECITON
     Route: 058
  4. OXYCODONE [Concomitant]
     Indication: PAIN
     Dosage: 10 MG, PRN Q4H
     Route: 048
  5. KEPPRA [Concomitant]
     Dosage: 500 MG, 2 BID
     Route: 048
  6. PERIACTIN [Concomitant]
     Dosage: 4 MG, TID
     Route: 048
  7. PHENERGAN [Concomitant]
     Indication: NAUSEA
     Dosage: 12.5 MG, PRN Q6H
     Route: 048
  8. PHENERGAN [Concomitant]
     Indication: VOMITING
  9. MAGNESIUM OXIDE [Concomitant]
     Indication: MINERAL SUPPLEMENTATION
     Dosage: 400 MG, TID
     Route: 048
  10. PRILOSEC [Concomitant]
     Dosage: 10MG, 2 Q D
     Route: 048
  11. RIBOFLAVIN [Concomitant]
     Indication: HEADACHE
     Dosage: 400 MG, TID
     Route: 048
  12. AMICAR [Concomitant]
     Dosage: 4000 MG, QID
     Route: 048

REACTIONS (3)
  - Menorrhagia [Recovering/Resolving]
  - Platelet count decreased [Recovering/Resolving]
  - Haemoglobin decreased [Recovering/Resolving]
